FAERS Safety Report 21465900 (Version 5)
Quarter: 2023Q1

REPORT INFORMATION
  Report Type: Spontaneous
  Country: US (occurrence: US)
  Receive Date: 20221017
  Receipt Date: 20230209
  Transmission Date: 20230418
  Serious: No
  Sender: FDA-Public Use
  Company Number: US-AMGEN-USASP2022177724

PATIENT
  Age: 58 Year
  Sex: Female

DRUGS (24)
  1. REPATHA [Suspect]
     Active Substance: EVOLOCUMAB
     Indication: Dyslipidaemia
     Dosage: 140 MILLIGRAM, Q2WK
     Route: 058
  2. REPATHA [Suspect]
     Active Substance: EVOLOCUMAB
     Indication: Hyperlipidaemia
  3. ASPIRIN [Concomitant]
     Active Substance: ASPIRIN
     Dosage: 81 MILLIGRAM, QD
     Route: 048
  4. COREG [Concomitant]
     Active Substance: CARVEDILOL
     Dosage: 12.5 MILLIGRAM, QD
     Route: 048
  5. DRISDOL [Concomitant]
     Active Substance: ERGOCALCIFEROL
     Dosage: 1.25 MILLIGRAM, QWK
     Route: 048
  6. PEPCID [Concomitant]
     Active Substance: FAMOTIDINE
     Dosage: 40 MILLIGRAM, QMO
     Route: 048
  7. FLONASE [Concomitant]
     Active Substance: FLUTICASONE PROPIONATE
     Dosage: 50 MICROGRAM, BID
  8. LASIX [Concomitant]
     Active Substance: FUROSEMIDE
     Dosage: 40 MILLIGRAM, QD
     Route: 048
  9. NEURONTIN [Concomitant]
     Active Substance: GABAPENTIN
     Dosage: 600 MILLIGRAM, QD
     Route: 048
  10. GLUCOTROL XL [Concomitant]
     Active Substance: GLIPIZIDE
     Dosage: 10 MILLIGRAM, QD
     Route: 048
  11. DEXTROSE [Concomitant]
     Active Substance: DEXTROSE
     Dosage: ADMINISTER 1 STRIP AS DIRECTED 3 TIMES DAILY.
  12. LANTUS [Concomitant]
     Active Substance: INSULIN GLARGINE
     Dosage: 100 INTERNATIONAL UNIT PER MILLILITRE, QD
     Route: 058
  13. CEPHULAC [Concomitant]
     Active Substance: LACTULOSE
     Dosage: 10 GRAM;AS NEEDED
     Route: 048
  14. XALATAN [Concomitant]
     Active Substance: LATANOPROST
     Dosage: 0.005 PERCENT, QD;DROP INTO BOTH EYES ONCE EVERY NIGHT AT BEDTIME
  15. MAGNESIUM OXIDE [Concomitant]
     Active Substance: MAGNESIUM OXIDE
     Dosage: 400 MILLIGRAM, QD
     Route: 048
  16. MAGNESIUM OXIDE [Concomitant]
     Active Substance: MAGNESIUM OXIDE
     Dosage: 240 UNK
     Route: 048
  17. GLUCOPHAGE [Concomitant]
     Active Substance: METFORMIN HYDROCHLORIDE
     Dosage: 1000 MILLIGRAM, BID;TAKE 0.5 TABLETS BY MOUTH TWICE DAILY WITH BREAKFAST AND DINNER
     Route: 048
  18. ROBAXIN [Concomitant]
     Active Substance: METHOCARBAMOL
     Indication: Muscle spasms
     Dosage: 750 MILLIGRAM;1 TABLET BY MOUTH EVERY 8 HOURS AS NEEDED
     Route: 048
  19. ZAROXOLYN [Concomitant]
     Active Substance: METOLAZONE
     Dosage: 5 MILLIGRAM
     Route: 048
  20. BACTROBAN [Concomitant]
     Active Substance: MUPIROCIN\MUPIROCIN CALCIUM
     Dosage: 2 PERCENT, BID;APPLY TO AFFECTED AREA TWICE DAILY-
  21. ADALAT CC [Concomitant]
     Active Substance: NIFEDIPINE
     Dosage: 90 MILLIGRAM, QD;TAKE 1 TABLET BY MOUTH ONCE DAILY
     Route: 048
  22. NYAMYC [Concomitant]
     Active Substance: NYSTATIN
     Dosage: PPLY TO AFFECTED AREA 3 TIMES DAILY.
  23. PRILOSEC [Concomitant]
     Active Substance: OMEPRAZOLE MAGNESIUM
     Dosage: 40 MILLIGRAM, QD
     Route: 048
  24. SYMBICORT [Concomitant]
     Active Substance: BUDESONIDE\FORMOTEROL FUMARATE DIHYDRATE
     Dosage: INHALE 2 PUFFS INTO THE LUNGS TWICE DAILY.

REACTIONS (2)
  - COVID-19 [Recovered/Resolved]
  - Device difficult to use [Unknown]

NARRATIVE: CASE EVENT DATE: 20220701
